FAERS Safety Report 9744358 (Version 8)
Quarter: 2014Q4

REPORT INFORMATION
  Report Type: Spontaneous
  Country: US (occurrence: US)
  Receive Date: 20131210
  Receipt Date: 20141110
  Transmission Date: 20150529
  Serious: Yes (Hospitalization, Disabling, Other)
  Sender: FDA-Public Use
  Company Number: US-009507513-1205USA01105

PATIENT
  Sex: Female
  Weight: 61.22 kg

DRUGS (5)
  1. ALENDRONATE SODIUM. [Suspect]
     Active Substance: ALENDRONATE SODIUM
     Dosage: 70 MG, UNK
  2. FOSAMAX [Suspect]
     Active Substance: ALENDRONATE SODIUM
     Indication: OSTEOPOROSIS
  3. FOSAMAX [Suspect]
     Active Substance: ALENDRONATE SODIUM
     Indication: OSTEOPENIA
     Dosage: 70 MG, QW
     Route: 048
     Dates: start: 200302, end: 2009
  4. FOSAMAX [Suspect]
     Active Substance: ALENDRONATE SODIUM
     Route: 048
     Dates: start: 20030305, end: 200902
  5. FOSAMAX PLUS D [Suspect]
     Active Substance: ALENDRONATE SODIUM\CHOLECALCIFEROL
     Route: 048
     Dates: start: 20030305, end: 200902

REACTIONS (26)
  - Intramedullary rod insertion [Unknown]
  - Ectopic pregnancy [Unknown]
  - Uterine dilation and curettage [Unknown]
  - Appendicectomy [Unknown]
  - Gastrooesophageal reflux disease [Unknown]
  - Intramedullary rod insertion [Unknown]
  - Multiple fractures [Unknown]
  - Osteoporosis [Unknown]
  - Hypertension [Unknown]
  - Blood cholesterol increased [Unknown]
  - Spinal osteoarthritis [Unknown]
  - Cystopexy [Unknown]
  - Arthralgia [Not Recovered/Not Resolved]
  - Barrett^s oesophagus [Unknown]
  - Uterine dilation and curettage [Unknown]
  - Osteomalacia [Unknown]
  - Hysterectomy [Unknown]
  - Bone density decreased [Unknown]
  - Cholecystectomy [Unknown]
  - Femur fracture [Not Recovered/Not Resolved]
  - Vitamin D deficiency [Unknown]
  - Scoliosis [Unknown]
  - Surgery [Unknown]
  - Femur fracture [Recovered/Resolved]
  - Haemoglobin decreased [Unknown]
  - Back pain [Not Recovered/Not Resolved]

NARRATIVE: CASE EVENT DATE: 200310
